FAERS Safety Report 10135574 (Version 1)
Quarter: 2014Q2

REPORT INFORMATION
  Report Type: Spontaneous
  Country: GB (occurrence: GB)
  Receive Date: 20140428
  Receipt Date: 20140428
  Transmission Date: 20141212
  Serious: Yes (Other)
  Sender: FDA-Public Use
  Company Number: PHFR2014GB003073

PATIENT
  Sex: 0

DRUGS (3)
  1. TEGRETOL [Suspect]
     Dosage: 600 (UNIT UNSPECIFIED) TWICE A DAY
  2. DOMPERIDONE [Concomitant]
  3. MIDAZOLAM [Concomitant]

REACTIONS (1)
  - Convulsion [Unknown]
